FAERS Safety Report 5828904-3 (Version None)
Quarter: 2008Q3

REPORT INFORMATION
  Report Type: 
  Country: None (occurrence: None)
  Receive Date: 20080731
  Receipt Date: 20080509
  Transmission Date: 20090109
  Serious: No
  Sender: FDA-Public Use
  Company Number: US-BAYER-200812531NA

PATIENT
  Age: 59 Year
  Sex: Female
  Weight: 95 kg

DRUGS (9)
  1. CIPRO [Suspect]
     Indication: URINARY TRACT INFECTION
     Dosage: TOTAL DAILY DOSE: 1000 MG  UNIT DOSE: 500 MG
     Route: 048
  2. MOTRIN [Suspect]
     Indication: DRUG USE FOR UNKNOWN INDICATION
  3. LYRICA [Concomitant]
  4. CLARINEX [Concomitant]
  5. NEXIUM [Concomitant]
  6. SIMVASTATIN [Concomitant]
  7. TEVETEN HCT [Concomitant]
     Indication: HYPERTENSION
  8. TOPAMAX [Concomitant]
     Indication: MIGRAINE
  9. EFFEXOR XR [Concomitant]

REACTIONS (6)
  - ABDOMINAL PAIN [None]
  - DIARRHOEA [None]
  - DIZZINESS [None]
  - DYSARTHRIA [None]
  - NAUSEA [None]
  - SOMNOLENCE [None]
